FAERS Safety Report 18766775 (Version 1)
Quarter: 2021Q1

REPORT INFORMATION
  Report Type: Spontaneous
  Country: TW (occurrence: TW)
  Receive Date: 20210121
  Receipt Date: 20210121
  Transmission Date: 20210419
  Serious: Yes (Death, Other)
  Sender: FDA-Public Use
  Company Number: TW-CHEPLA-C20210287

PATIENT
  Age: 57 Year
  Sex: Male

DRUGS (15)
  1. MESALAZINE (5?ASA) [Concomitant]
     Indication: COLITIS ULCERATIVE
     Dates: start: 201305
  2. GANCICLOVIR. [Suspect]
     Active Substance: GANCICLOVIR
     Indication: CYTOMEGALOVIRUS INFECTION
  3. METHYLPREDNISOLONE. [Concomitant]
     Active Substance: METHYLPREDNISOLONE
  4. MESALAZINE (5?ASA) [Concomitant]
     Indication: COLITIS ULCERATIVE
     Dates: start: 201408
  5. ETOPOSIDE. [Suspect]
     Active Substance: ETOPOSIDE
     Indication: DIFFUSE LARGE B-CELL LYMPHOMA
  6. DOXORUBICIN [Suspect]
     Active Substance: DOXORUBICIN
     Indication: DIFFUSE LARGE B-CELL LYMPHOMA
  7. TACROLIMUS. [Suspect]
     Active Substance: TACROLIMUS
     Dates: start: 201712
  8. AZATHIOPRINE (AZA) [Concomitant]
     Dates: start: 201401
  9. RITUXIMAB. [Suspect]
     Active Substance: RITUXIMAB
     Indication: DIFFUSE LARGE B-CELL LYMPHOMA
  10. PREDNISOLONE (PSL) [Suspect]
     Active Substance: PREDNISOLONE
     Indication: COLITIS ULCERATIVE
     Dates: start: 201408
  11. VINCRISTINE [Suspect]
     Active Substance: VINCRISTINE
     Indication: DIFFUSE LARGE B-CELL LYMPHOMA
  12. PREDNISOLONE. [Suspect]
     Active Substance: PREDNISOLONE
     Indication: DIFFUSE LARGE B-CELL LYMPHOMA
  13. PREDNISOLONE (PSL) [Suspect]
     Active Substance: PREDNISOLONE
     Indication: COLITIS ULCERATIVE
     Dates: start: 201305
  14. MERCAPTOPURINE (6?MP) [Concomitant]
     Indication: HEPATIC ENZYME INCREASED
     Dates: start: 201408
  15. MERCAPTOPURINE (6?MP) [Concomitant]
     Indication: HEPATIC ENZYME INCREASED
     Dates: start: 201401

REACTIONS (6)
  - Malaise [Unknown]
  - Disease progression [Unknown]
  - Lymphoma [Unknown]
  - Sepsis [Fatal]
  - Intestinal obstruction [Unknown]
  - Rectal tenesmus [Unknown]
